FAERS Safety Report 9861938 (Version 1)
Quarter: 2014Q1

REPORT INFORMATION
  Report Type: Spontaneous
  Country: US (occurrence: US)
  Receive Date: 20140203
  Receipt Date: 20140203
  Transmission Date: 20141002
  Serious: Yes (Death, Hospitalization)
  Sender: FDA-Public Use
  Company Number: US-JNJFOC-20140119611

PATIENT
  Age: 8 Decade
  Sex: Female

DRUGS (1)
  1. XARELTO [Suspect]
     Indication: HYPERCOAGULATION
     Route: 048
     Dates: start: 201312, end: 201312

REACTIONS (2)
  - Pulmonary embolism [Fatal]
  - Deep vein thrombosis [Unknown]
